FAERS Safety Report 20683037 (Version 1)
Quarter: 2022Q2

REPORT INFORMATION
  Report Type: Other
  Country: IR (occurrence: None)
  Receive Date: 20220407
  Receipt Date: 20220407
  Transmission Date: 20220720
  Serious: Yes (Hospitalization)
  Sender: FDA-Public Use
  Company Number: IR-Umedica-000222

PATIENT
  Age: 32 Year
  Sex: Male

DRUGS (1)
  1. SILDENAFIL [Suspect]
     Active Substance: SILDENAFIL
     Indication: Erectile dysfunction
     Dosage: 50 MG AS A SINGLE DOSE, NO MORE THAN?ONCE A DAY

REACTIONS (1)
  - Psychotic disorder [Recovered/Resolved]
